FAERS Safety Report 5413451-3 (Version None)
Quarter: 2007Q3

REPORT INFORMATION
  Report Type: 
  Country: None (occurrence: None)
  Receive Date: 20070810
  Receipt Date: 20070726
  Transmission Date: 20080115
  Serious: Yes (Hospitalization)
  Sender: FDA-Public Use
  Company Number: 2003JP007522

PATIENT
  Age: 29 Year
  Sex: Female
  Weight: 47 kg

DRUGS (8)
  1. PROGRAF [Suspect]
     Indication: RENAL TRANSPLANT
     Dosage: 4 MG, D, IV NOS
     Route: 042
     Dates: start: 20001001
  2. PROGRAF [Suspect]
     Indication: RENAL TRANSPLANT
     Dosage: 10 MG, D, ORAL
     Route: 048
  3. MYCOPHENOLATE MOFETIL [Concomitant]
  4. PREDNISOLONE [Concomitant]
  5. PREDNISONE TAB [Concomitant]
  6. DEOXYSPERGUALIN [Concomitant]
  7. AZATHIOPRINE [Concomitant]
  8. NEROL [Concomitant]

REACTIONS (9)
  - ANTIBODY TEST POSITIVE [None]
  - CHRONIC ALLOGRAFT NEPHROPATHY [None]
  - MENINGITIS CRYPTOCOCCAL [None]
  - NEPHRITIS INTERSTITIAL [None]
  - NEPHROPATHY TOXIC [None]
  - POLYOMAVIRUS-ASSOCIATED NEPHROPATHY [None]
  - RENAL ARTERIOSCLEROSIS [None]
  - RENAL TUBULAR DISORDER [None]
  - TRANSPLANT REJECTION [None]
